FAERS Safety Report 25166829 (Version 1)
Quarter: 2025Q2

REPORT INFORMATION
  Report Type: Report from Study
  Country: US (occurrence: US)
  Receive Date: 20250407
  Receipt Date: 20250407
  Transmission Date: 20250717
  Serious: Yes (Other)
  Sender: ACADIA PHARMACEUTICALS
  Company Number: US-ACADIA PHARMACEUTICALS INC.-ACA-2025-PIM-003689

PATIENT
  Sex: Male

DRUGS (10)
  1. NUPLAZID [Suspect]
     Active Substance: PIMAVANSERIN TARTRATE
     Indication: Parkinson^s disease
     Dosage: 34 MILLIGRAM, QD
     Route: 048
     Dates: start: 20250312, end: 20250321
  2. NUPLAZID [Suspect]
     Active Substance: PIMAVANSERIN TARTRATE
     Indication: Hallucination
  3. NUPLAZID [Suspect]
     Active Substance: PIMAVANSERIN TARTRATE
     Indication: Delusion
  4. CARBIDOPA\LEVODOPA [Concomitant]
     Active Substance: CARBIDOPA\LEVODOPA
  5. DUTASTERIDE [Concomitant]
     Active Substance: DUTASTERIDE
  6. LISINOPRIL [Concomitant]
     Active Substance: LISINOPRIL
  7. MEMANTINE [Concomitant]
     Active Substance: MEMANTINE
  8. NEBIVOLOL [Concomitant]
     Active Substance: NEBIVOLOL
  9. SIMVASTATIN [Concomitant]
     Active Substance: SIMVASTATIN
  10. TAMSULOSIN HYDROCHLORIDE [Concomitant]
     Active Substance: TAMSULOSIN HYDROCHLORIDE

REACTIONS (6)
  - Hallucination [Unknown]
  - Sleep talking [Unknown]
  - Loss of personal independence in daily activities [Unknown]
  - Hypersomnia [Unknown]
  - Nightmare [Unknown]
  - Agitation [Unknown]
